FAERS Safety Report 10096418 (Version 2)
Quarter: 2014Q2

REPORT INFORMATION
  Report Type: Spontaneous
  Country: CN (occurrence: CN)
  Receive Date: 20140422
  Receipt Date: 20140424
  Transmission Date: 20141212
  Serious: Yes (Death)
  Sender: FDA-Public Use
  Company Number: CN-GE HEALTHCARE MEDICAL DIAGNOSTICS-VISP-PR-1404S-0173

PATIENT
  Age: 77 Year
  Sex: Female
  Weight: 50 kg

DRUGS (2)
  1. VISIPAQUE [Suspect]
     Indication: ACUTE MYOCARDIAL INFARCTION
     Route: 013
     Dates: start: 20140331, end: 20140331
  2. VISIPAQUE [Suspect]
     Indication: THERAPEUTIC PROCEDURE

REACTIONS (1)
  - Left ventricular failure [Fatal]
